FAERS Safety Report 8785635 (Version 1)
Quarter: 2012Q4

REPORT INFORMATION
  Report Type: 
  Country: JP (occurrence: JP)
  Receive Date: 20120914
  Receipt Date: 20120914
  Transmission Date: 20130627
  Serious: Yes (Other)
  Sender: FDA-Public Use
  Company Number: JP-SANOFI-AVENTIS-2012SA065668

PATIENT
  Age: 78 Year
  Sex: Male

DRUGS (8)
  1. DOCETAXEL [Suspect]
     Indication: HER-2 POSITIVE GASTRIC CANCER
     Route: 065
     Dates: start: 201002
  2. CISPLATIN [Suspect]
     Indication: HER-2 POSITIVE GASTRIC CANCER
     Route: 065
  3. CISPLATIN [Suspect]
     Indication: HER-2 POSITIVE GASTRIC CANCER
     Route: 065
     Dates: start: 201004
  4. CISPLATIN [Suspect]
     Indication: HER-2 POSITIVE GASTRIC CANCER
     Route: 065
  5. CAPECITABINE [Suspect]
     Indication: HER-2 POSITIVE GASTRIC CANCER
     Route: 065
     Dates: start: 201004
  6. CAPECITABINE [Suspect]
     Indication: HER-2 POSITIVE GASTRIC CANCER
     Route: 065
  7. TRASTUZUMAB [Concomitant]
     Indication: HER-2 POSITIVE GASTRIC CANCER
     Dates: start: 201004
  8. GIMERACIL/OTERACIL POTASSIUM/TEGAFUR [Concomitant]
     Indication: HER-2 POSITIVE GASTRIC CANCER
     Dosage: six cycles

REACTIONS (2)
  - Gastrointestinal toxicity [Recovering/Resolving]
  - Renal impairment [Unknown]
